FAERS Safety Report 8123113-X (Version None)
Quarter: 2012Q1

REPORT INFORMATION
  Report Type: 
  Country: None (occurrence: None)
  Receive Date: 20120208
  Receipt Date: 20120203
  Transmission Date: 20120608
  Serious: Yes (Hospitalization, Other)
  Sender: FDA-Public Use
  Company Number: IT-PFIZER INC-2010082848

PATIENT
  Age: 86 Year
  Sex: Female

DRUGS (5)
  1. CARDURA [Suspect]
     Indication: HYPERTENSION
     Dosage: 2 MG, DAILY
     Route: 048
     Dates: start: 20100618, end: 20100619
  2. TENORETIC 100 [Suspect]
     Indication: HYPERTENSION
     Dosage: [ATENOLOL 100 MG] / [CHLORTHALIDONE 25 MG], 1X/DAY
     Route: 048
     Dates: start: 20100502, end: 20100619
  3. VERAPAMIL [Suspect]
     Indication: HYPERTENSION
     Dosage: 80 MG, DAILY
     Route: 048
     Dates: start: 20100502
  4. RAMIPRIL [Suspect]
     Indication: HYPERTENSION
     Dosage: 80 MG, DAILY
     Route: 048
     Dates: start: 20100502
  5. SIMVASTATIN [Concomitant]
     Dosage: UNK

REACTIONS (6)
  - ORTHOSTATIC HYPOTENSION [None]
  - HEAD INJURY [None]
  - SYNCOPE [None]
  - EXTRADURAL HAEMATOMA [None]
  - SUBDURAL HAEMATOMA [None]
  - SKULL FRACTURE [None]
